FAERS Safety Report 4886126-7 (Version None)
Quarter: 2006Q1

REPORT INFORMATION
  Report Type: 
  Country: None (occurrence: None)
  Receive Date: 20060117
  Receipt Date: 20060106
  Transmission Date: 20060701
  Serious: Yes (Congenital Anomaly, Other)
  Sender: FDA-Public Use
  Company Number: GBWYE280906JAN06

PATIENT
  Sex: Male

DRUGS (1)
  1. EFFEXOR [Suspect]
     Indication: DEPRESSION
     Dosage: 300 MG 1X PER 1 DAY
     Route: 064
     Dates: start: 19990301

REACTIONS (2)
  - DEXTROCARDIA [None]
  - DRUG EXPOSURE DURING PREGNANCY [None]
